FAERS Safety Report 5852369-9 (Version None)
Quarter: 2008Q3

REPORT INFORMATION
  Report Type: 
  Country: None (occurrence: None)
  Receive Date: 20080819
  Receipt Date: 20080804
  Transmission Date: 20090109
  Serious: Yes (Death, Hospitalization, Other)
  Sender: FDA-Public Use
  Company Number: KADN20080311

PATIENT
  Age: 20 Year
  Sex: Male

DRUGS (3)
  1. MORPHINE [Suspect]
     Dosage: UNKNOWN, INGESTION/ INHALATION
     Route: 055
     Dates: end: 20060101
  2. METHAMPHETAMINE HYDROCHLORIDE [Suspect]
     Dosage: UNKNOWN, INGESTION/INHALATION
     Route: 055
     Dates: end: 20060101
  3. UNKNOWN CHEMICAL [Suspect]
     Dosage: UNKNOWN, INGESTION/INHALATION
     Route: 055
     Dates: end: 20060101

REACTIONS (8)
  - BRAIN OEDEMA [None]
  - DEPRESSED LEVEL OF CONSCIOUSNESS [None]
  - DRUG TOXICITY [None]
  - INTENTIONAL DRUG MISUSE [None]
  - PULMONARY CONGESTION [None]
  - PULMONARY OEDEMA [None]
  - RENAL FAILURE [None]
  - RESPIRATORY ARREST [None]
